FAERS Safety Report 25747051 (Version 3)
Quarter: 2025Q4

REPORT INFORMATION
  Report Type: Spontaneous
  Country: US (occurrence: US)
  Receive Date: 20250901
  Receipt Date: 20251107
  Transmission Date: 20260118
  Serious: No
  Sender: SANOFI AVENTIS
  Company Number: US-SA-2025SA259640

PATIENT
  Age: 48 Year
  Sex: Female
  Weight: 82.1 kg

DRUGS (2)
  1. DUPIXENT [Suspect]
     Active Substance: DUPILUMAB
     Indication: Dermatitis atopic
     Dosage: 600 MG, 1X
     Route: 058
     Dates: start: 20250701, end: 20250701
  2. DUPIXENT [Suspect]
     Active Substance: DUPILUMAB
     Dosage: 300 MG, QOW
     Route: 058
     Dates: start: 20250715

REACTIONS (11)
  - Contusion [Not Recovered/Not Resolved]
  - Anxiety [Recovering/Resolving]
  - Rebound eczema [Unknown]
  - Product dose omission issue [Unknown]
  - Urticaria [Recovering/Resolving]
  - Erythema [Recovering/Resolving]
  - Pruritus [Recovering/Resolving]
  - Rash [Recovering/Resolving]
  - Injection site bruising [Unknown]
  - Injection site pain [Unknown]
  - Fear of injection [Unknown]

NARRATIVE: CASE EVENT DATE: 20250101
